FAERS Safety Report 14282193 (Version 4)
Quarter: 2018Q1

REPORT INFORMATION
  Report Type: Spontaneous
  Country: US (occurrence: US)
  Receive Date: 20171213
  Receipt Date: 20180104
  Transmission Date: 20180508
  Serious: Yes (Death)
  Sender: FDA-Public Use
  Company Number: US-LUNDBECK-DKLU2041067

PATIENT
  Age: 60 Year
  Sex: Male

DRUGS (4)
  1. NORTHERA [Suspect]
     Active Substance: DROXIDOPA
     Indication: AUTONOMIC NEUROPATHY
     Dosage: TITRATION SCHEDULE C
     Route: 048
     Dates: start: 20171130
  2. NORTHERA [Suspect]
     Active Substance: DROXIDOPA
     Indication: AMYLOIDOSIS
     Route: 048
  3. NORTHERA [Suspect]
     Active Substance: DROXIDOPA
     Indication: ORTHOSTATIC HYPOTENSION
  4. MIDODRINE [Concomitant]
     Active Substance: MIDODRINE
     Indication: PRODUCT USED FOR UNKNOWN INDICATION
     Route: 065

REACTIONS (10)
  - Therapeutic response decreased [Unknown]
  - Orthostatic hypotension [Unknown]
  - Hypotension [Fatal]
  - Drug ineffective [Unknown]
  - Cardiac arrest [Fatal]
  - Feeling abnormal [Unknown]
  - Movement disorder [Unknown]
  - Weight increased [Unknown]
  - Headache [Unknown]
  - Fatigue [Unknown]

NARRATIVE: CASE EVENT DATE: 20171201
